FAERS Safety Report 9651136 (Version 1)
Quarter: 2013Q4

REPORT INFORMATION
  Report Type: Spontaneous
  Country: US (occurrence: None)
  Receive Date: 20131028
  Receipt Date: 20131028
  Transmission Date: 20140711
  Serious: Yes (Other)
  Sender: FDA-Public Use
  Company Number: None

PATIENT
  Age: 26 Week
  Sex: Male
  Weight: .92 kg

DRUGS (2)
  1. CHLORAPREP [Suspect]
     Indication: CENTRAL VENOUS CATHETERISATION
     Dosage: 1 APPLICATOR, X1, TOPICAL
     Route: 061
     Dates: start: 20131014
  2. CHLORAPREP [Suspect]
     Indication: INFECTION PROPHYLAXIS
     Dosage: 1 APPLICATOR, X1, TOPICAL
     Route: 061
     Dates: start: 20131014

REACTIONS (4)
  - Chemical injury [None]
  - Burns second degree [None]
  - Erythema [None]
  - Application site burn [None]
